FAERS Safety Report 19064893 (Version 3)
Quarter: 2021Q2

REPORT INFORMATION
  Report Type: Report from Study
  Country: ES (occurrence: ES)
  Receive Date: 20210326
  Receipt Date: 20210421
  Transmission Date: 20210717
  Serious: Yes (Hospitalization, Other)
  Sender: FDA-Public Use
  Company Number: ES-BRISTOL-MYERS SQUIBB COMPANY-BMS-2021-027949

PATIENT
  Age: 70 Year
  Sex: Female
  Weight: 64 kg

DRUGS (10)
  1. ATORVASTATINA [ATORVASTATIN] [Concomitant]
     Active Substance: ATORVASTATIN
     Indication: PRODUCT USED FOR UNKNOWN INDICATION
     Dosage: 40 MILLIGRAM
     Route: 048
     Dates: start: 20200101
  2. NIVOLUMAB [Suspect]
     Active Substance: NIVOLUMAB
     Indication: MALIGNANT MELANOMA
     Dosage: 62 MILLIGRAM, Q3WK
     Route: 042
     Dates: start: 20201116
  3. EFFICIB [Concomitant]
     Active Substance: METFORMIN HYDROCHLORIDE\SITAGLIPTIN PHOSPHATE
     Indication: PRODUCT USED FOR UNKNOWN INDICATION
     Dosage: 100 MILLIGRAM
     Route: 048
     Dates: start: 20200101
  4. DIAMICRON [Concomitant]
     Active Substance: GLICLAZIDE
     Indication: PRODUCT USED FOR UNKNOWN INDICATION
     Dosage: 30 MILLIGRAM
     Route: 048
     Dates: start: 20200101
  5. OMEPRAZOL [OMEPRAZOLE] [Concomitant]
     Active Substance: OMEPRAZOLE
     Indication: PRODUCT USED FOR UNKNOWN INDICATION
     Dosage: 20 MILLIGRAM
     Route: 048
     Dates: start: 20200101
  6. CLAVULANIC ACID [Concomitant]
     Active Substance: CLAVULANIC ACID
     Indication: PYREXIA
     Dosage: 384 MILLIGRAM
     Route: 048
     Dates: start: 20210210
  7. IPILIMUMAB [Suspect]
     Active Substance: IPILIMUMAB
     Indication: MALIGNANT MELANOMA
     Dosage: 186 MILLIGRAM, Q3WK
     Route: 042
     Dates: start: 20201116
  8. DEXAMETASON [DEXAMETHASONE] [Concomitant]
     Active Substance: DEXAMETHASONE
     Indication: BLOOD ALKALINE PHOSPHATASE INCREASED
     Dosage: 4 MILLIGRAM
     Route: 048
     Dates: start: 20201228
  9. DEXAMETASON [DEXAMETHASONE] [Concomitant]
     Active Substance: DEXAMETHASONE
     Indication: HEPATOTOXICITY
     Dosage: 12 MILLIGRAM
     Route: 048
     Dates: start: 20210210
  10. AMOXICILLINE [AMOXICILLIN SODIUM] [Concomitant]
     Active Substance: AMOXICILLIN SODIUM
     Indication: PYREXIA
     Dosage: 2625 MILLIGRAM
     Route: 048
     Dates: start: 20210210

REACTIONS (1)
  - Liver function test increased [Recovered/Resolved]

NARRATIVE: CASE EVENT DATE: 20210319
